FAERS Safety Report 7654820-0 (Version None)
Quarter: 2011Q3

REPORT INFORMATION
  Report Type: 
  Country: None (occurrence: None)
  Receive Date: 20110803
  Receipt Date: 20110803
  Transmission Date: 20111222
  Serious: Yes (Hospitalization)
  Sender: FDA-Public Use
  Company Number: None

PATIENT
  Sex: Female
  Weight: 98.4 kg

DRUGS (2)
  1. XOLAIR [Suspect]
     Indication: ASTHMA
     Dosage: 300 MG Q14 DAYS SUBCUTANEOUS
     Route: 058
     Dates: start: 20110712
  2. XOLAIR [Suspect]
     Indication: ASTHMA
     Dosage: 300 MG Q14 DAYS SUBCUTANEOUS
     Route: 058
     Dates: start: 20050101

REACTIONS (2)
  - EJECTION FRACTION DECREASED [None]
  - CARDIAC FAILURE CONGESTIVE [None]
